FAERS Safety Report 5697866-4 (Version None)
Quarter: 2008Q2

REPORT INFORMATION
  Report Type: 
  Country: None (occurrence: None)
  Receive Date: 20080404
  Receipt Date: 20080404
  Transmission Date: 20081010
  Serious: Yes (Hospitalization, Other)
  Sender: FDA-Public Use
  Company Number: None

PATIENT
  Age: 63 Year
  Sex: Male

DRUGS (3)
  1. SULFADIAZINE [Suspect]
     Dates: start: 20041210, end: 20050105
  2. PYRIMETHAMINE TAB [Suspect]
     Dates: start: 20041210, end: 20050105
  3. LEUCOVORIN CALCIUM [Suspect]
     Dates: start: 20041210, end: 20050105

REACTIONS (4)
  - CHOLESTASIS [None]
  - HEPATITIS ACUTE [None]
  - HEPATOTOXICITY [None]
  - LIVER INJURY [None]
